FAERS Safety Report 8044960 (Version 7)
Quarter: 2012Q4

REPORT INFORMATION
  Report Type: 
  Country: US (occurrence: US)
  Receive Date: 20110720
  Receipt Date: 20120927
  Transmission Date: 20130627
  Serious: Yes (Other)
  Sender: FDA-Public Use
  Company Number: US-ELI_LILLY_AND_COMPANY-US201106007415

PATIENT
  Age: 76 Year
  Sex: Female

DRUGS (5)
  1. FORTEO [Suspect]
     Indication: OSTEOPOROSIS
     Dosage: 20 ug, qd
     Route: 058
  2. FORTEO [Suspect]
     Dosage: 20 ug, qd
     Route: 058
  3. FORTEO [Suspect]
     Dosage: 20 ug, qd
     Route: 058
  4. CELEBREX [Concomitant]
  5. WARFARIN [Concomitant]

REACTIONS (11)
  - Cauda equina syndrome [Recovered/Resolved]
  - Convulsion [Unknown]
  - Surgery [Unknown]
  - International normalised ratio decreased [Unknown]
  - Arthritis [Unknown]
  - Limb discomfort [Not Recovered/Not Resolved]
  - Contusion [Recovered/Resolved]
  - Contusion [Not Recovered/Not Resolved]
  - Injection site haemorrhage [Unknown]
  - Pain [Unknown]
  - Injection site bruising [Unknown]
